FAERS Safety Report 4502989-9 (Version None)
Quarter: 2004Q4

REPORT INFORMATION
  Report Type: 
  Country: None (occurrence: None)
  Receive Date: 20041117
  Receipt Date: 20041109
  Transmission Date: 20050328
  Serious: Yes (Hospitalization)
  Sender: FDA-Public Use
  Company Number: GB-BRISTOL-MYERS SQUIBB COMPANY-12759502

PATIENT
  Age: 45 Year
  Sex: Female
  Weight: 49 kg

DRUGS (4)
  1. ETOPOSIDE [Suspect]
     Indication: UTERINE ADENOCARCINOMA
     Route: 042
     Dates: start: 20040921, end: 20040925
  2. FENTANYL [Concomitant]
     Indication: PAIN
     Route: 062
  3. LANSOPRAZOLE [Concomitant]
     Route: 048
     Dates: start: 20040921
  4. DEXAMETHASONE [Concomitant]
     Route: 048
     Dates: start: 20040921, end: 20040930

REACTIONS (4)
  - CIRCULATORY COLLAPSE [None]
  - CONVULSION [None]
  - NEUTROPENIA [None]
  - PYREXIA [None]
